FAERS Safety Report 6553103-X (Version None)
Quarter: 2010Q1

REPORT INFORMATION
  Report Type: 
  Country: None (occurrence: None)
  Receive Date: 20100127
  Receipt Date: 20090119
  Transmission Date: 20100710
  Serious: No
  Sender: FDA-Public Use
  Company Number: A0764162A

PATIENT
  Age: 50 Year
  Sex: Female

DRUGS (7)
  1. IMITREX [Suspect]
     Indication: MIGRAINE
     Dosage: 100MG AS REQUIRED
     Route: 048
     Dates: start: 19950101
  2. IMITREX [Suspect]
     Dosage: 1INJ AS REQUIRED
     Route: 058
     Dates: start: 19920101
  3. ESTRADIOL [Concomitant]
  4. LEVOTHYROXINE SODIUM [Concomitant]
  5. WELLBUTRIN SR [Concomitant]
  6. ZYRTEC [Concomitant]
  7. PROPRANOLOL [Concomitant]

REACTIONS (1)
  - DRUG INEFFECTIVE [None]
